FAERS Safety Report 8577842-4 (Version None)
Quarter: 2012Q3

REPORT INFORMATION
  Report Type: 
  Country: None (occurrence: None)
  Receive Date: 20120808
  Receipt Date: 20120731
  Transmission Date: 20120928
  Serious: No
  Sender: FDA-Public Use
  Company Number: US-BIOGENIDEC-2012BI028434

PATIENT
  Age: 47 Year
  Sex: Female

DRUGS (1)
  1. TYSABRI [Suspect]
     Indication: MULTIPLE SCLEROSIS
     Route: 042
     Dates: start: 20110922, end: 20120503

REACTIONS (9)
  - VERTIGO [None]
  - SINUSITIS [None]
  - TOOTH ABSCESS [None]
  - FACIAL PAIN [None]
  - PAIN IN EXTREMITY [None]
  - BLOOD POTASSIUM DECREASED [None]
  - PAIN IN JAW [None]
  - DENTAL CARIES [None]
  - EAR INFECTION [None]
